FAERS Safety Report 5062514-3 (Version None)
Quarter: 2006Q3

REPORT INFORMATION
  Report Type: 
  Country: None (occurrence: None)
  Receive Date: 20060726
  Receipt Date: 20060706
  Transmission Date: 20061208
  Serious: Yes (Hospitalization, Disabling)
  Sender: FDA-Public Use
  Company Number: 2006CG01170

PATIENT
  Age: 18154 Day
  Sex: Female
  Weight: 76 kg

DRUGS (16)
  1. NAROPIN [Suspect]
     Indication: POSTOPERATIVE ANALGESIA
     Route: 008
     Dates: start: 20030909, end: 20030901
  2. NAROPIN [Suspect]
     Route: 008
     Dates: start: 20030901, end: 20030912
  3. MARCAINE [Concomitant]
     Indication: SPINAL ANAESTHESIA
     Route: 037
     Dates: start: 20030909, end: 20030909
  4. OMEPRAZOLE [Concomitant]
     Route: 048
  5. HYPNOVEL [Concomitant]
     Indication: SEDATION
     Route: 042
     Dates: start: 20030909, end: 20030909
  6. ELECTROLYTES SOLUTION [Concomitant]
     Route: 042
     Dates: start: 20030909
  7. LOVENOX [Concomitant]
     Route: 058
     Dates: start: 20030909
  8. ACETAMINOPHEN [Concomitant]
     Route: 042
     Dates: start: 20030909
  9. PROFENID [Concomitant]
     Route: 042
     Dates: start: 20030909
  10. CEFUROXIME [Concomitant]
     Indication: ANTIBIOTIC PROPHYLAXIS
     Route: 042
     Dates: start: 20030909
  11. DEROXAT [Concomitant]
  12. STILNOX [Concomitant]
  13. DI-ANTALVIC [Concomitant]
  14. VOLTAREN [Concomitant]
  15. CEPHALGAN [Concomitant]
  16. ZANTAC [Concomitant]
     Dates: start: 20030909

REACTIONS (1)
  - CAUDA EQUINA SYNDROME [None]
